FAERS Safety Report 9451116 (Version 1)
Quarter: 2013Q3

REPORT INFORMATION
  Report Type: Spontaneous
  Country: JP (occurrence: JP)
  Receive Date: 20130809
  Receipt Date: 20130809
  Transmission Date: 20140515
  Serious: Yes (Other)
  Sender: FDA-Public Use
  Company Number: JP-PFIZER INC-2013232578

PATIENT
  Age: 70 Year
  Sex: Female

DRUGS (1)
  1. CONAN [Suspect]
     Dosage: UNK
     Route: 048

REACTIONS (1)
  - Amylase increased [Unknown]
